FAERS Safety Report 9555287 (Version 1)
Quarter: 2013Q3

REPORT INFORMATION
  Report Type: Spontaneous
  Country: US (occurrence: None)
  Receive Date: 20130830
  Receipt Date: 20130830
  Transmission Date: 20140515
  Serious: Yes (Hospitalization)
  Sender: FDA-Public Use
  Company Number: KV201300162

PATIENT
  Sex: Female

DRUGS (3)
  1. MAKENA [Suspect]
     Indication: PREMATURE DELIVERY
     Route: 030
     Dates: start: 20121102
  2. MAKENA [Suspect]
     Indication: OFF LABEL USE
     Route: 030
     Dates: start: 20121102
  3. MAKENA [Suspect]
     Indication: ABORTION
     Route: 030
     Dates: start: 20121102

REACTIONS (3)
  - Premature labour [None]
  - Premature delivery [None]
  - Off label use [None]
